FAERS Safety Report 25445828 (Version 1)
Quarter: 2025Q2

REPORT INFORMATION
  Report Type: Spontaneous
  Country: US (occurrence: US)
  Receive Date: 20250617
  Receipt Date: 20250617
  Transmission Date: 20250716
  Serious: No
  Sender: SUNOVION
  Company Number: US-SMPA-2025SPA006434AA

PATIENT

DRUGS (2)
  1. GEMTESA [Suspect]
     Active Substance: VIBEGRON
     Indication: Product used for unknown indication
     Dosage: 75 MG, QD
     Route: 048
  2. PYRIDIUM [Concomitant]
     Active Substance: PHENAZOPYRIDINE
     Route: 065

REACTIONS (3)
  - Bladder spasm [Unknown]
  - Pain [Unknown]
  - Dysuria [Unknown]

NARRATIVE: CASE EVENT DATE: 20250518
